FAERS Safety Report 22293838 (Version 1)
Quarter: 2023Q2

REPORT INFORMATION
  Report Type: Spontaneous
  Country: DE (occurrence: DE)
  Receive Date: 20230508
  Receipt Date: 20230508
  Transmission Date: 20230722
  Serious: Yes (Other)
  Sender: FDA-Public Use
  Company Number: DE-ROCHE-3331876

PATIENT
  Sex: Male

DRUGS (13)
  1. BENDAMUSTINE HYDROCHLORIDE [Suspect]
     Active Substance: BENDAMUSTINE HYDROCHLORIDE
     Indication: Diffuse large B-cell lymphoma
     Dosage: FOURTH LINE TREATMENT, R-POLA-B
     Route: 065
     Dates: start: 20221223, end: 20230111
  2. MABTHERA [Suspect]
     Active Substance: RITUXIMAB
     Indication: Diffuse large B-cell lymphoma
     Dosage: FIRST LINE TREATMENT, R-CHOEP (2 CYCLE)
     Route: 065
     Dates: start: 20220401, end: 20220601
  3. MABTHERA [Suspect]
     Active Substance: RITUXIMAB
     Dosage: SECOND LINE TREATMENT, R-POLA-CHEP
     Route: 065
     Dates: start: 20220601, end: 20221001
  4. MABTHERA [Suspect]
     Active Substance: RITUXIMAB
     Dosage: THIRD LINE TREATMENT, R-DHAP
     Route: 065
     Dates: start: 20221122, end: 20221219
  5. MABTHERA [Suspect]
     Active Substance: RITUXIMAB
     Dosage: FOURTH LINE TREATMENT, R-POLA-BEND
     Route: 065
     Dates: start: 20221223, end: 20230111
  6. CYCLOPHOSPHAMIDE\DOXORUBICIN\ETOPOSIDE\PREDNISONE\VINCRISTINE [Suspect]
     Active Substance: CYCLOPHOSPHAMIDE\DOXORUBICIN\ETOPOSIDE\PREDNISONE\VINCRISTINE
     Indication: Diffuse large B-cell lymphoma
     Dosage: FIRST LINE TREATMENT, R-CHOEP (2 CYCLE)
     Route: 065
     Dates: start: 20220401, end: 20220601
  7. POLIVY [Suspect]
     Active Substance: POLATUZUMAB VEDOTIN-PIIQ
     Indication: Diffuse large B-cell lymphoma
     Dosage: SECOND LINE TREATMENT, R-POLA-CHEP
     Route: 065
     Dates: start: 20220601, end: 20221001
  8. POLIVY [Suspect]
     Active Substance: POLATUZUMAB VEDOTIN-PIIQ
     Dosage: FOURTH LINE TREATMENT, R-POLA-BEND
     Route: 065
     Dates: start: 20221223, end: 20230111
  9. PREDNISONE [Suspect]
     Active Substance: PREDNISONE
     Indication: Diffuse large B-cell lymphoma
     Dosage: SECOND LINE TREATMENT, R-POLA-CHEP
     Route: 065
     Dates: start: 20220601, end: 20221001
  10. ETOPOSIDE [Suspect]
     Active Substance: ETOPOSIDE
     Indication: Diffuse large B-cell lymphoma
     Dosage: SECOND LINE TREATMENT, R-POLA-CHEP
     Route: 065
     Dates: start: 20220601, end: 20221001
  11. CYCLOPHOSPHAMIDE\DOXORUBICIN HYDROCHLORIDE [Suspect]
     Active Substance: CYCLOPHOSPHAMIDE\DOXORUBICIN HYDROCHLORIDE
     Indication: Diffuse large B-cell lymphoma
     Dosage: SECOND LINE TREATMENT, R-POLA-CHEP
     Route: 065
     Dates: start: 20220601, end: 20221001
  12. CISPLATIN\CYTARABINE\DEXAMETHASONE [Suspect]
     Active Substance: CISPLATIN\CYTARABINE\DEXAMETHASONE
     Indication: Diffuse large B-cell lymphoma
     Dosage: THIRD LINE TREATMENT, R-DHAP
     Route: 065
     Dates: start: 20221122, end: 20221219
  13. METHOTREXATE [Concomitant]
     Active Substance: METHOTREXATE
     Indication: Diffuse large B-cell lymphoma
     Dosage: HIGH-DOSE
     Route: 065
     Dates: start: 2022, end: 2022

REACTIONS (2)
  - Lymphoma [Not Recovered/Not Resolved]
  - Off label use [Unknown]
